FAERS Safety Report 23046036 (Version 1)
Quarter: 2023Q4

REPORT INFORMATION
  Report Type: Spontaneous
  Country: US (occurrence: US)
  Receive Date: 20231009
  Receipt Date: 20231009
  Transmission Date: 20240109
  Serious: No
  Sender: FDA-Public Use
  Company Number: US-AMGEN-USASP2023176031

PATIENT
  Sex: Male

DRUGS (1)
  1. REPATHA [Suspect]
     Active Substance: EVOLOCUMAB
     Indication: Blood cholesterol increased
     Dosage: UNK
     Route: 065
     Dates: start: 20191212

REACTIONS (7)
  - Hyperhidrosis [Unknown]
  - Heart rate increased [Unknown]
  - Oesophageal disorder [Not Recovered/Not Resolved]
  - Gastrointestinal disorder [Not Recovered/Not Resolved]
  - Blood pressure increased [Unknown]
  - Muscle spasms [Unknown]
  - Influenza like illness [Unknown]

NARRATIVE: CASE EVENT DATE: 20191212
